FAERS Safety Report 10149998 (Version 1)
Quarter: 2014Q2

REPORT INFORMATION
  Report Type: Spontaneous
  Country: US (occurrence: US)
  Receive Date: 20140502
  Receipt Date: 20140502
  Transmission Date: 20141212
  Serious: Yes (Other)
  Sender: FDA-Public Use
  Company Number: US-PFIZER INC-2014121106

PATIENT
  Age: 36 Year
  Sex: Female
  Weight: 95.24 kg

DRUGS (1)
  1. LYRICA [Suspect]
     Indication: NEUROPATHY PERIPHERAL
     Dosage: 100 MG (50 MG X2 CAPSULES), 2X/DAY
     Route: 048
     Dates: start: 201310, end: 201404

REACTIONS (3)
  - Cerebrovascular arteriovenous malformation [Unknown]
  - Headache [Unknown]
  - Malaise [Unknown]
